FAERS Safety Report 17718349 (Version 2)
Quarter: 2020Q2

REPORT INFORMATION
  Report Type: Report from Study
  Country: CA (occurrence: CA)
  Receive Date: 20200428
  Receipt Date: 20200513
  Transmission Date: 20200714
  Serious: Yes (Other)
  Sender: FDA-Public Use
  Company Number: NVSC2020CA104492

PATIENT
  Sex: Female

DRUGS (3)
  1. LETROZOLE. [Suspect]
     Active Substance: LETROZOLE
     Indication: PRODUCT USED FOR UNKNOWN INDICATION
     Dosage: UNK
     Route: 065
     Dates: start: 201812
  2. KISQALI [Suspect]
     Active Substance: RIBOCICLIB
     Indication: BREAST CANCER METASTATIC
     Dosage: 200 MG, QD FOR 21 DAYS THEN 1 WEEK OFF
     Route: 048
     Dates: start: 201812
  3. KISQALI [Suspect]
     Active Substance: RIBOCICLIB
     Dosage: UNK
     Route: 048
     Dates: start: 20190111, end: 20200416

REACTIONS (5)
  - Malignant neoplasm progression [Not Recovered/Not Resolved]
  - Bone pain [Unknown]
  - Metastases to liver [Unknown]
  - Drug ineffective [Unknown]
  - Breast cancer metastatic [Not Recovered/Not Resolved]
